FAERS Safety Report 17860236 (Version 1)
Quarter: 2020Q2

REPORT INFORMATION
  Report Type: Spontaneous
  Country: US (occurrence: US)
  Receive Date: 20200604
  Receipt Date: 20200604
  Transmission Date: 20200714
  Serious: Yes (Hospitalization)
  Sender: FDA-Public Use
  Company Number: US-PFIZER INC-2020216472

PATIENT
  Age: 77 Year
  Sex: Male

DRUGS (1)
  1. BEVACIZUMAB. [Suspect]
     Active Substance: BEVACIZUMAB
     Indication: MACULAR DEGENERATION
     Dosage: 1.25 MG, (1.25 MG/0.05 CC) EVERY 6 WEEKS
     Route: 031

REACTIONS (3)
  - Off label use [Unknown]
  - Immune thrombocytopenia [Recovered/Resolved]
  - Product use in unapproved indication [Unknown]
